FAERS Safety Report 9061297 (Version 2)
Quarter: 2013Q1

REPORT INFORMATION
  Report Type: Report from Study
  Country: AT (occurrence: AT)
  Receive Date: 20130204
  Receipt Date: 20130326
  Transmission Date: 20140127
  Serious: Yes (Hospitalization)
  Sender: FDA-Public Use
  Company Number: AT-ASTELLAS-2013EU000292

PATIENT
  Age: 84 Year
  Sex: Male
  Weight: 81 kg

DRUGS (5)
  1. ENZALUTAMIDE [Suspect]
     Indication: PROSTATE CANCER
     Dosage: 40 MG, QID
     Route: 048
     Dates: start: 20121102, end: 20130109
  2. ENZALUTAMIDE [Suspect]
     Dosage: 40 MG, QID
     Route: 048
     Dates: start: 20130308
  3. ZOMETA [Concomitant]
     Indication: OSTEOPOROSIS PROPHYLAXIS
     Dosage: 6 MG, OTHER
     Route: 042
     Dates: start: 20120514
  4. DEFLAMAT                           /00372302/ [Concomitant]
     Dosage: 75 MG, BID
     Route: 048
  5. ASS [Concomitant]
     Indication: THROMBOSIS PROPHYLAXIS
     Dosage: UNK
     Route: 048

REACTIONS (1)
  - Jaundice [Recovered/Resolved]
